FAERS Safety Report 7179844-1 (Version None)
Quarter: 2010Q4

REPORT INFORMATION
  Report Type: 
  Country: None (occurrence: None)
  Receive Date: 20101221
  Receipt Date: 20101208
  Transmission Date: 20110411
  Serious: Yes (Hospitalization, Other)
  Sender: FDA-Public Use
  Company Number: US-ROCHE-727249

PATIENT
  Sex: Male
  Weight: 79.4 kg

DRUGS (1)
  1. ACCUTANE [Suspect]
     Indication: ACNE
     Route: 048
     Dates: start: 19930607, end: 19931130

REACTIONS (11)
  - ASTHMA [None]
  - BACK PAIN [None]
  - BLOOD CHOLESTEROL INCREASED [None]
  - BLOOD TRIGLYCERIDES INCREASED [None]
  - CROHN'S DISEASE [None]
  - DEPRESSION [None]
  - GASTROINTESTINAL INJURY [None]
  - ILEITIS [None]
  - INFLAMMATORY BOWEL DISEASE [None]
  - LIP DRY [None]
  - SMALL INTESTINAL OBSTRUCTION [None]
